FAERS Safety Report 14754060 (Version 5)
Quarter: 2018Q2

REPORT INFORMATION
  Report Type: Spontaneous
  Country: US (occurrence: US)
  Receive Date: 20180412
  Receipt Date: 20180629
  Transmission Date: 20180711
  Serious: Yes (Hospitalization, Other)
  Sender: FDA-Public Use
  Company Number: US-ACTELION-A-NJ2018-170559

PATIENT
  Age: 56 Year
  Sex: Female
  Weight: 95.24 kg

DRUGS (4)
  1. OPSUMIT [Concomitant]
     Active Substance: MACITENTAN
  2. ELIQUIS [Concomitant]
     Active Substance: APIXABAN
  3. VELETRI [Suspect]
     Active Substance: EPOPROSTENOL
     Indication: PULMONARY HYPERTENSION
     Dosage: 25 NG/KG, PER MIN
     Route: 042
  4. ADCIRCA [Concomitant]
     Active Substance: TADALAFIL

REACTIONS (18)
  - Impaired healing [Unknown]
  - Dyspnoea [Not Recovered/Not Resolved]
  - Palpitations [Unknown]
  - Rash [Unknown]
  - Device dislocation [Recovered/Resolved]
  - Neuropathy peripheral [Unknown]
  - Constipation [Unknown]
  - Bone pain [Unknown]
  - Wound complication [Unknown]
  - Diarrhoea [Unknown]
  - Pain in jaw [Unknown]
  - Catheter site swelling [Unknown]
  - Catheter management [Unknown]
  - Catheter site erythema [Unknown]
  - Chest pain [Unknown]
  - Myalgia [Unknown]
  - Dyspnoea exertional [Not Recovered/Not Resolved]
  - Wound [Unknown]

NARRATIVE: CASE EVENT DATE: 201806
